FAERS Safety Report 8207884-X (Version None)
Quarter: 2012Q1

REPORT INFORMATION
  Report Type: 
  Country: None (occurrence: None)
  Receive Date: 20120314
  Receipt Date: 20120312
  Transmission Date: 20120608
  Serious: Yes (Other)
  Sender: FDA-Public Use
  Company Number: US-PFIZER INC-2012064905

PATIENT
  Sex: Female

DRUGS (1)
  1. CHANTIX [Suspect]
     Dosage: UNK
     Dates: start: 20120201

REACTIONS (4)
  - ABNORMAL BEHAVIOUR [None]
  - RECTAL CANCER [None]
  - SCREAMING [None]
  - STOMATITIS [None]
